FAERS Safety Report 13075203 (Version 2)
Quarter: 2017Q1

REPORT INFORMATION
  Report Type: Spontaneous
  Country: US (occurrence: US)
  Receive Date: 20161230
  Receipt Date: 20170104
  Transmission Date: 20170428
  Serious: No
  Sender: FDA-Public Use
  Company Number: US-VERTEX PHARMACEUTICALS-2016-007261

PATIENT
  Age: 11 Year
  Sex: Female

DRUGS (9)
  1. URSODIOL. [Concomitant]
     Active Substance: URSODIOL
  2. BOOST [Concomitant]
     Active Substance: DIETARY SUPPLEMENT
  3. CREON [Concomitant]
     Active Substance: PANCRELIPASE AMYLASE\PANCRELIPASE LIPASE\PANCRELIPASE PROTEASE
  4. PULMOZYME [Concomitant]
     Active Substance: DORNASE ALFA
  5. PROAIR HFA [Concomitant]
     Active Substance: ALBUTEROL SULFATE
  6. MULTIVITAMIN [Concomitant]
     Active Substance: VITAMINS
  7. OMEPRAZOLE. [Concomitant]
     Active Substance: OMEPRAZOLE
  8. ORKAMBI [Suspect]
     Active Substance: IVACAFTOR\LUMACAFTOR
     Indication: CYSTIC FIBROSIS
     Dosage: 200/250MG, BID
     Route: 048
     Dates: start: 201612
  9. TOBI [Concomitant]
     Active Substance: TOBRAMYCIN

REACTIONS (1)
  - Cough [Not Recovered/Not Resolved]

NARRATIVE: CASE EVENT DATE: 201612
